FAERS Safety Report 5490205-3 (Version None)
Quarter: 2007Q4

REPORT INFORMATION
  Report Type: 
  Country: None (occurrence: None)
  Receive Date: 20071018
  Receipt Date: 20071010
  Transmission Date: 20080405
  Serious: Yes (Other)
  Sender: FDA-Public Use
  Company Number: GB-MERCK-0710GBR00070

PATIENT
  Age: 61 Year
  Sex: Female

DRUGS (9)
  1. INDOCIN [Suspect]
     Indication: MIGRAINE
     Route: 048
     Dates: end: 20070912
  2. ZOLMITRIPTAN [Concomitant]
     Route: 065
  3. AMITRIPTYLINE HYDROCHLORIDE [Concomitant]
     Route: 065
  4. LANSOPRAZOLE [Concomitant]
     Route: 065
  5. ONDANSETRON HYDROCHLORIDE [Concomitant]
     Route: 065
  6. ALBUTEROL [Concomitant]
     Route: 065
  7. TRAMADOL HYDROCHLORIDE [Concomitant]
     Route: 065
  8. BECLOMETHASONE DIPROPIONATE [Concomitant]
     Route: 065
  9. LITHIUM CARBONATE [Concomitant]
     Route: 065

REACTIONS (2)
  - AUTOIMMUNE HEPATITIS [None]
  - CHOLECYSTECTOMY [None]
